FAERS Safety Report 6871239-0 (Version None)
Quarter: 2010Q3

REPORT INFORMATION
  Report Type: 
  Country: None (occurrence: None)
  Receive Date: 20100723
  Receipt Date: 20100712
  Transmission Date: 20110219
  Serious: Yes (Hospitalization, Other)
  Sender: FDA-Public Use
  Company Number: US-PFIZER INC-2010012361

PATIENT
  Sex: Female

DRUGS (1)
  1. CHANTIX [Suspect]
     Indication: SMOKING CESSATION THERAPY
     Dosage: 0.5-1 MG TWICE DAILY
     Route: 048
     Dates: start: 20070501

REACTIONS (7)
  - ANXIETY [None]
  - BIPOLAR DISORDER [None]
  - BORDERLINE PERSONALITY DISORDER [None]
  - INSOMNIA [None]
  - MAJOR DEPRESSION [None]
  - OVERDOSE [None]
  - SUICIDE ATTEMPT [None]
